FAERS Safety Report 14830541 (Version 1)
Quarter: 2018Q2

REPORT INFORMATION
  Report Type: Spontaneous
  Country: US (occurrence: US)
  Receive Date: 20180430
  Receipt Date: 20180430
  Transmission Date: 20180711
  Serious: No
  Sender: FDA-Public Use
  Company Number: US-SA-2018SA045681

PATIENT
  Age: 67 Year
  Sex: Female

DRUGS (4)
  1. REPATHA [Concomitant]
     Active Substance: EVOLOCUMAB
     Route: 065
  2. PRALUENT [Suspect]
     Active Substance: ALIROCUMAB
     Indication: BLOOD CHOLESTEROL INCREASED
     Route: 058
     Dates: start: 2017
  3. ALIROCUMAB PREFILLED PEN [Suspect]
     Active Substance: ALIROCUMAB
     Indication: BLOOD CHOLESTEROL INCREASED
     Dates: start: 2017
  4. ZETIA [Concomitant]
     Active Substance: EZETIMIBE
     Route: 065

REACTIONS (1)
  - Pain [Unknown]
